FAERS Safety Report 15609167 (Version 5)
Quarter: 2019Q1

REPORT INFORMATION
  Report Type: Spontaneous
  Country: US (occurrence: US)
  Receive Date: 20181112
  Receipt Date: 20190211
  Transmission Date: 20190417
  Serious: Yes (Hospitalization)
  Sender: FDA-Public Use
  Company Number: US-ACTELION-A-NJ2018-181338

PATIENT
  Age: 63 Year
  Sex: Female
  Weight: 108.84 kg

DRUGS (4)
  1. AMLODIPINE [Concomitant]
     Active Substance: AMLODIPINE BESYLATE
  2. TADALAFIL. [Concomitant]
     Active Substance: TADALAFIL
  3. REMODULIN [Concomitant]
     Active Substance: TREPROSTINIL
     Dosage: UNK
     Dates: start: 20181126
  4. OPSUMIT [Suspect]
     Active Substance: MACITENTAN
     Indication: PULMONARY ARTERIAL HYPERTENSION
     Dosage: 10 MG, QD
     Route: 048
     Dates: start: 20181029, end: 201901

REACTIONS (9)
  - Upper respiratory tract infection [Recovered/Resolved with Sequelae]
  - Sputum discoloured [Recovered/Resolved with Sequelae]
  - Nasal congestion [Recovered/Resolved with Sequelae]
  - Hospitalisation [Unknown]
  - Pulmonary hypertension [Unknown]
  - Sinusitis [Not Recovered/Not Resolved]
  - Inappropriate schedule of product administration [Unknown]
  - Cough [Recovered/Resolved with Sequelae]
  - Product dose omission [Unknown]

NARRATIVE: CASE EVENT DATE: 20181030
